FAERS Safety Report 8545716-0 (Version None)
Quarter: 2012Q3

REPORT INFORMATION
  Report Type: 
  Country: None (occurrence: None)
  Receive Date: 20120727
  Receipt Date: 20071009
  Transmission Date: 20120928
  Serious: Yes (Death, Other)
  Sender: FDA-Public Use
  Company Number: CO-PFIZER INC-2012179638

PATIENT
  Age: 76 Year
  Sex: Male

DRUGS (6)
  1. ACCUPRIL [Suspect]
     Indication: HYPERTENSION
     Dosage: 1 DF, ONCE DAILY
  2. ISOSORBIDE DINITRATE [Concomitant]
     Dosage: 1 DF, ONCE DAILY
  3. OLMESARTAN MEDOXOMIL [Suspect]
     Indication: HYPERTENSION
     Dosage: 1 DF, TWICE DAILY
  4. METOPROLOL TARTRATE [Concomitant]
     Dosage: 1 DF, ONCE DAILY
  5. ACETYLSALICYLIC ACID [Concomitant]
     Dosage: 1 DF, ONCE DAILY
  6. LIPITOR [Suspect]
     Indication: DYSLIPIDAEMIA
     Dosage: 1 DF, ONCE DAILY

REACTIONS (4)
  - POLYURIA [None]
  - CHEST PAIN [None]
  - DEATH [None]
  - HAEMATURIA [None]
